FAERS Safety Report 8283332-9 (Version None)
Quarter: 2012Q2

REPORT INFORMATION
  Report Type: 
  Country: None (occurrence: None)
  Receive Date: 20120413
  Receipt Date: 20120411
  Transmission Date: 20120825
  Serious: No
  Sender: FDA-Public Use
  Company Number: US-TEVA-332989USA

PATIENT
  Sex: Female

DRUGS (9)
  1. PREDNISONE TAB [Concomitant]
  2. VOLTAREN [Concomitant]
  3. VITAMIN D2 [Concomitant]
  4. PROAIR HFA [Suspect]
     Route: 055
  5. METAXALONE [Concomitant]
  6. ZANAFLEX [Concomitant]
  7. DOXEPIN HCL [Concomitant]
  8. OXYCODONE HCL [Concomitant]
  9. SPIRIVA [Concomitant]

REACTIONS (2)
  - THROAT IRRITATION [None]
  - DYSGEUSIA [None]
